FAERS Safety Report 6149342-2 (Version None)
Quarter: 2009Q2

REPORT INFORMATION
  Report Type: 
  Country: None (occurrence: None)
  Receive Date: 20090406
  Receipt Date: 20090406
  Transmission Date: 20091009
  Serious: Yes (Death, Hospitalization)
  Sender: FDA-Public Use
  Company Number: None

PATIENT
  Sex: Female
  Weight: 86.1834 kg

DRUGS (2)
  1. EVEROLIMUS [Suspect]
     Indication: PANCREATIC CARCINOMA
     Dosage: 7.5 MG
     Dates: start: 20090312, end: 20090315
  2. CETUXIMAB [Suspect]
     Indication: PANCREATIC CARCINOMA
     Dosage: 250 MG/M2
     Dates: start: 20090312

REACTIONS (2)
  - LOBAR PNEUMONIA [None]
  - MORAXELLA INFECTION [None]
